FAERS Safety Report 25868932 (Version 1)
Quarter: 2025Q4

REPORT INFORMATION
  Report Type: Spontaneous
  Country: US (occurrence: US)
  Receive Date: 20251001
  Receipt Date: 20251001
  Transmission Date: 20260117
  Serious: No
  Sender: GLAXOSMITHKLINE
  Company Number: US-GSK-US2025122775

PATIENT
  Sex: Male

DRUGS (2)
  1. BENLYSTA [Suspect]
     Active Substance: BELIMUMAB
     Indication: Systemic lupus erythematosus
     Dosage: 200MG EVERY 7 DAYS
     Dates: start: 202103
  2. BENLYSTA [Suspect]
     Active Substance: BELIMUMAB
     Dosage: 200MG EVERY 7 DAYS

REACTIONS (1)
  - Increased appetite [Not Recovered/Not Resolved]
